FAERS Safety Report 9717373 (Version 2)
Quarter: 2013Q4

REPORT INFORMATION
  Report Type: Spontaneous
  Country: US (occurrence: US)
  Receive Date: 20131127
  Receipt Date: 20131223
  Transmission Date: 20140711
  Serious: Yes (Other)
  Sender: FDA-Public Use
  Company Number: US-PFIZER INC-2013339649

PATIENT
  Age: 50 Year
  Sex: 0

DRUGS (2)
  1. ZOLOFT [Suspect]
     Dosage: UNK
  2. AMBIEN [Suspect]
     Dosage: UNK

REACTIONS (2)
  - Hallucination, visual [Unknown]
  - Drug hypersensitivity [Unknown]
